FAERS Safety Report 17016263 (Version 1)
Quarter: 2019Q4

REPORT INFORMATION
  Report Type: Spontaneous
  Country: US (occurrence: US)
  Receive Date: 20191111
  Receipt Date: 20191111
  Transmission Date: 20200122
  Serious: No
  Sender: FDA-Public Use
  Company Number: US-MYLANLABS-2019M1101718

PATIENT
  Sex: Male
  Weight: 95 kg

DRUGS (3)
  1. ALFUZOSIN [Suspect]
     Active Substance: ALFUZOSIN
     Indication: PROSTATE CANCER
     Dosage: UNK
     Dates: start: 2017, end: 20181031
  2. FINASTERIDE. [Suspect]
     Active Substance: FINASTERIDE
     Indication: PROSTATE CANCER
     Dosage: UNK
     Route: 048
     Dates: start: 2017, end: 20181031
  3. PREDNISONE TABLETS USP [Suspect]
     Active Substance: PREDNISONE
     Indication: ARTHRALGIA
     Dosage: 5 MILLIGRAM
     Dates: start: 2016, end: 20181031

REACTIONS (3)
  - Blood glucose increased [Recovered/Resolved]
  - Glycosylated haemoglobin increased [Recovered/Resolved]
  - Rash [Recovered/Resolved]
